FAERS Safety Report 5957093-X (Version None)
Quarter: 2008Q4

REPORT INFORMATION
  Report Type: 
  Country: None (occurrence: None)
  Receive Date: 20081118
  Receipt Date: 20081112
  Transmission Date: 20090506
  Serious: Yes (Other)
  Sender: FDA-Public Use
  Company Number: PHHY2008FR28356

PATIENT
  Age: 62 Year
  Sex: Female

DRUGS (1)
  1. LIORESAL [Suspect]
     Indication: ALCOHOL WITHDRAWAL SYNDROME
     Dosage: 40 MG, QD
     Route: 048

REACTIONS (4)
  - CONFUSIONAL STATE [None]
  - INSOMNIA [None]
  - MANIA [None]
  - RESTLESSNESS [None]
